FAERS Safety Report 6383535-4 (Version None)
Quarter: 2009Q4

REPORT INFORMATION
  Report Type: 
  Country: None (occurrence: None)
  Receive Date: 20091001
  Receipt Date: 20090922
  Transmission Date: 20100525
  Serious: Yes (Hospitalization)
  Sender: FDA-Public Use
  Company Number: NL-ROCHE-658249

PATIENT
  Weight: 64 kg

DRUGS (6)
  1. CAPECITABINE [Suspect]
     Indication: GASTRIC CANCER
     Dosage: FREQUENCY: BID FROM 1-14 EVERY 3 WEEKS, ROUTE, FORM, DOSE, FREQUENCY PER PROTOCOL.
     Route: 048
     Dates: start: 20090728, end: 20090919
  2. EPIRUBICIN [Suspect]
     Indication: GASTRIC CANCER
     Dosage: FREQUENCY: ON DAY 1 OF EVERY 3 WEEKS ROUTE, DOSE, FREQUENCY PER PROTOCOL
     Route: 042
     Dates: start: 20090728
  3. CISPLATIN [Suspect]
     Indication: GASTRIC CANCER
     Dosage: FREQUENCY: ON DAY 1 OF EVERY 3 WEEKS ROUTE, FREQUENCY, DOSE PER PROTOCOL
     Route: 042
     Dates: start: 20090728
  4. POTASSIUM CHLORIDE [Concomitant]
     Route: 048
     Dates: end: 20090919
  5. MG CITRATE [Concomitant]
     Route: 048
     Dates: end: 20090919
  6. ORLISTAT [Concomitant]
     Route: 048

REACTIONS (4)
  - DIARRHOEA [None]
  - NAUSEA [None]
  - NEUTROPENIA [None]
  - VOMITING [None]
